FAERS Safety Report 8352105-0 (Version None)
Quarter: 2012Q2

REPORT INFORMATION
  Report Type: 
  Country: None (occurrence: None)
  Receive Date: 20120511
  Receipt Date: 20120503
  Transmission Date: 20120825
  Serious: Yes (Other)
  Sender: FDA-Public Use
  Company Number: US-BAYER-2012-040485

PATIENT
  Age: 30 Year
  Sex: Female
  Weight: 108.84 kg

DRUGS (2)
  1. YASMIN [Suspect]
  2. YAZ [Suspect]
     Dosage: UNK
     Dates: start: 20030101, end: 20051101

REACTIONS (3)
  - DEEP VEIN THROMBOSIS [None]
  - PAIN [None]
  - INJURY [None]
